FAERS Safety Report 4406345-3 (Version None)
Quarter: 2004Q3

REPORT INFORMATION
  Report Type: 
  Country: None (occurrence: None)
  Receive Date: 20040723
  Receipt Date: 20030627
  Transmission Date: 20050211
  Serious: No
  Sender: FDA-Public Use
  Company Number: US-GLAXOSMITHKLINE-A0414369A

PATIENT
  Age: 21 Year
  Sex: Female

DRUGS (5)
  1. AVANDIA [Suspect]
     Indication: HYPERTRICHOSIS
     Dosage: 4MG PER DAY
     Route: 048
     Dates: start: 20030401
  2. LEXAPRO [Concomitant]
  3. WELLBUTRIN [Concomitant]
  4. TRAZODONE HCL [Concomitant]
  5. ORTHO CYCLEN-28 [Concomitant]

REACTIONS (3)
  - PRURITUS GENERALISED [None]
  - RASH GENERALISED [None]
  - URTICARIA [None]
